FAERS Safety Report 22540058 (Version 1)
Quarter: 2023Q2

REPORT INFORMATION
  Report Type: Spontaneous
  Country: US (occurrence: None)
  Receive Date: 20230608
  Receipt Date: 20230608
  Transmission Date: 20230721
  Serious: Yes (Death)
  Sender: FDA-Public Use
  Company Number: None

PATIENT
  Age: 72 Year
  Sex: Male

DRUGS (2)
  1. AMIODARONE [Suspect]
     Active Substance: AMIODARONE
  2. RIVAROXABAN [Suspect]
     Active Substance: RIVAROXABAN

REACTIONS (10)
  - Tachypnoea [None]
  - Haemoptysis [None]
  - Lung infiltration [None]
  - Lung consolidation [None]
  - Emphysema [None]
  - Lung opacity [None]
  - Hypertension [None]
  - Hypoxia [None]
  - Pneumonia [None]
  - Toxicity to various agents [None]

NARRATIVE: CASE EVENT DATE: 20230314
